FAERS Safety Report 24862066 (Version 1)
Quarter: 2025Q1

REPORT INFORMATION
  Report Type: Spontaneous
  Country: US (occurrence: US)
  Receive Date: 20250120
  Receipt Date: 20250120
  Transmission Date: 20250409
  Serious: No
  Sender: ABBVIE
  Company Number: US-ABBVIE-6093084

PATIENT
  Age: 4 Month

DRUGS (1)
  1. CREON [Suspect]
     Active Substance: PANCRELIPASE AMYLASE\PANCRELIPASE LIPASE\PANCRELIPASE PROTEASE
     Indication: Product used for unknown indication
     Route: 048

REACTIONS (4)
  - Steatorrhoea [Not Recovered/Not Resolved]
  - Crying [Not Recovered/Not Resolved]
  - Flatulence [Not Recovered/Not Resolved]
  - Hypophagia [Not Recovered/Not Resolved]
